FAERS Safety Report 21308487 (Version 3)
Quarter: 2023Q1

REPORT INFORMATION
  Report Type: Report from Study
  Country: US (occurrence: US)
  Receive Date: 20220908
  Receipt Date: 20230204
  Transmission Date: 20230418
  Serious: No
  Sender: FDA-Public Use
  Company Number: US-ACORDA-ACO_173418_2022

PATIENT
  Sex: Female

DRUGS (3)
  1. AMPYRA [Suspect]
     Active Substance: DALFAMPRIDINE
     Indication: Multiple sclerosis
     Dosage: 10 MILLIGRAM, BID
     Route: 048
     Dates: start: 202203
  2. AMPYRA [Suspect]
     Active Substance: DALFAMPRIDINE
     Indication: Otitis media
  3. AMPYRA [Suspect]
     Active Substance: DALFAMPRIDINE
     Indication: Nasal congestion

REACTIONS (2)
  - Dizziness [Unknown]
  - Off label use [Unknown]
